FAERS Safety Report 7486366-7 (Version None)
Quarter: 2011Q2

REPORT INFORMATION
  Report Type: 
  Country: None (occurrence: None)
  Receive Date: 20110517
  Receipt Date: 20110502
  Transmission Date: 20111010
  Serious: Yes (Other)
  Sender: FDA-Public Use
  Company Number: US-AMGEN-USASP2011022878

PATIENT
  Age: 53 Year
  Sex: Female

DRUGS (2)
  1. ENBREL [Suspect]
     Indication: RHEUMATOID ARTHRITIS
     Dosage: 50 MG, QWK
     Dates: start: 20090201, end: 20110418
  2. METHOTREXATE [Concomitant]

REACTIONS (10)
  - SKIN EXFOLIATION [None]
  - URINARY TRACT INFECTION [None]
  - CREATININE RENAL CLEARANCE ABNORMAL [None]
  - RASH MACULO-PAPULAR [None]
  - PARAPSORIASIS [None]
  - COMPLEX REGIONAL PAIN SYNDROME [None]
  - DRUG INEFFECTIVE [None]
  - RHEUMATOID ARTHRITIS [None]
  - PLATELET COUNT DECREASED [None]
  - PIGMENTATION DISORDER [None]
